FAERS Safety Report 21969205 (Version 1)
Quarter: 2023Q1

REPORT INFORMATION
  Report Type: Spontaneous
  Country: US (occurrence: US)
  Receive Date: 20230208
  Receipt Date: 20230208
  Transmission Date: 20230417
  Serious: No
  Sender: FDA-Public Use
  Company Number: US-GALDERMA-US2023000452

PATIENT

DRUGS (4)
  1. PROACTIV MD ADAPALENE ACNE TREATMENT [Suspect]
     Active Substance: ADAPALENE
     Indication: Acne
     Dosage: 1 DOSAGE FORM, QD (USED AT NIGHT, DAILY, A SMALL AMOUNT PER APPLICATION ON THE FACE AREA)
     Route: 061
     Dates: start: 202301, end: 20230108
  2. Proactiv MD Ultra Gentle Cleanser [Concomitant]
     Indication: Acne
     Dosage: 1 DOSAGE FORM, A SMALL SIZE 2 OR MORE TIMES A DAY ON FACE
     Route: 061
     Dates: start: 202301, end: 20230108
  3. Proactiv MD Ultra Hydrating Moisturizer [Concomitant]
     Indication: Acne
     Dosage: 1 DOSAGE FORM, A SMALL SIZE 2 OR MORE TIMES A DAY ON FACE
     Route: 061
     Dates: start: 202301, end: 20230108
  4. LORATADINE [Concomitant]
     Active Substance: LORATADINE
     Indication: Product used for unknown indication

REACTIONS (2)
  - Skin burning sensation [Recovered/Resolved]
  - Application site erythema [Recovered/Resolved]

NARRATIVE: CASE EVENT DATE: 20230107
